FAERS Safety Report 6646719-3 (Version None)
Quarter: 2010Q1

REPORT INFORMATION
  Report Type: 
  Country: None (occurrence: None)
  Receive Date: 20100323
  Receipt Date: 20100309
  Transmission Date: 20100710
  Serious: Yes (Hospitalization)
  Sender: FDA-Public Use
  Company Number: US-ROCHE-603375

PATIENT
  Sex: Female

DRUGS (10)
  1. PEG-INTERFERON ALFA 2A (RO 25-8310) [Suspect]
     Indication: HEPATITIS C
     Route: 058
     Dates: start: 20080915, end: 20081018
  2. RIBAVIRIN [Suspect]
     Indication: HEPATITIS C
     Route: 048
     Dates: start: 20080915, end: 20081018
  3. VX-950 [Suspect]
     Indication: HEPATITIS C
     Dosage: THE SUBJECT WAS UNBLINDED AND REVEALED TO BE ON VX-950.
     Route: 048
     Dates: start: 20080915, end: 20081018
  4. HYDROCHLOROTHIAZIDE [Suspect]
     Indication: HYPERTENSION
     Route: 065
     Dates: start: 20081003, end: 20081026
  5. ATENOLOL [Concomitant]
     Indication: HYPERTENSION
     Route: 048
     Dates: start: 20080527, end: 20081003
  6. NAPROSYN [Concomitant]
     Route: 048
     Dates: start: 20080915
  7. PRINZIDE [Concomitant]
     Indication: HYPERTENSION
     Route: 048
     Dates: start: 20080527, end: 20081026
  8. METFORMIN HCL [Concomitant]
     Route: 048
     Dates: start: 20080527
  9. ASPIRIN [Concomitant]
     Route: 048
     Dates: start: 20080724
  10. ENALAPRIL MALEATE [Concomitant]
     Indication: HYPERTENSION
     Dates: start: 20081003

REACTIONS (3)
  - ANAEMIA [None]
  - GASTROENTERITIS [None]
  - HYPONATRAEMIA [None]
